FAERS Safety Report 9170436 (Version 1)
Quarter: 2013Q1

REPORT INFORMATION
  Report Type: Report from Study
  Country: US (occurrence: US)
  Receive Date: 20130319
  Receipt Date: 20130319
  Transmission Date: 20140127
  Serious: Yes (Hospitalization)
  Sender: FDA-Public Use
  Company Number: US-JNJFOC-20130303828

PATIENT
  Sex: Female
  Weight: 60.33 kg

DRUGS (5)
  1. REMICADE [Suspect]
     Indication: CROHN^S DISEASE
     Dosage: 10 VIALS
     Route: 042
     Dates: start: 201209
  2. REMICADE [Suspect]
     Indication: CROHN^S DISEASE
     Dosage: 5 VIALS
     Route: 042
     Dates: start: 2010, end: 2012
  3. UNSPECIFIED ANTICOAGULANT [Suspect]
     Indication: PRODUCT USED FOR UNKNOWN INDICATION
     Route: 065
     Dates: start: 201207, end: 201207
  4. FENTANYL PATCH [Concomitant]
     Route: 065
  5. PROMETHAZINE [Concomitant]
     Indication: NAUSEA
     Route: 065

REACTIONS (3)
  - Intestinal obstruction [Recovered/Resolved]
  - Hypertension [Not Recovered/Not Resolved]
  - Blood disorder [Not Recovered/Not Resolved]
